FAERS Safety Report 14475911 (Version 1)
Quarter: 2018Q1

REPORT INFORMATION
  Report Type: Report from Study
  Country: ES (occurrence: ES)
  Receive Date: 20180201
  Receipt Date: 20180201
  Transmission Date: 20180509
  Serious: Yes (Life-Threatening, Hospitalization)
  Sender: FDA-Public Use
  Company Number: ES-BAUSCH-BL-2018-002001

PATIENT
  Age: 54 Year
  Sex: Female

DRUGS (3)
  1. LEVEMIR [Suspect]
     Active Substance: INSULIN DETEMIR
     Indication: INTENTIONAL OVERDOSE
     Dosage: 100 U/ML, INJECTABLE SOLUTION IN A PREPARED PEN (FLEXPEN), 5 PRE-FILLED 3 ML PENS (FLEXPEN)
     Route: 058
  2. ACTRAPID [Suspect]
     Active Substance: INSULIN HUMAN
     Indication: INTENTIONAL OVERDOSE
     Dosage: INJECTABLE SOLUTION IN A PREPARED PEN, 5 PRE-FILLED 3 ML PENS
     Route: 058
  3. METFORMINA [Suspect]
     Active Substance: METFORMIN HYDROCHLORIDE
     Indication: INTENTIONAL OVERDOSE
     Route: 048

REACTIONS (2)
  - Hypoglycaemic coma [Recovered/Resolved]
  - Intentional overdose [Recovered/Resolved]

NARRATIVE: CASE EVENT DATE: 20160522
